FAERS Safety Report 10990737 (Version 1)
Quarter: 2015Q2

REPORT INFORMATION
  Report Type: Report from Study
  Country: NL (occurrence: NL)
  Receive Date: 20150406
  Receipt Date: 20150406
  Transmission Date: 20150821
  Serious: Yes (Other)
  Sender: FDA-Public Use
  Company Number: NL-AMGEN-NLDSL2015032242

PATIENT
  Age: 47 Year
  Sex: Female

DRUGS (2)
  1. XGEVA [Suspect]
     Active Substance: DENOSUMAB
     Indication: PRODUCT USED FOR UNKNOWN INDICATION
     Dosage: 120 (70 MG/ML, 1.7 ML), Q4WK
     Route: 058
     Dates: start: 20141231
  2. NEULASTA [Concomitant]
     Active Substance: PEGFILGRASTIM
     Dosage: 0.6 ML (10 MG/ML), UNK

REACTIONS (2)
  - Exposed bone in jaw [Unknown]
  - Tooth disorder [Unknown]
